FAERS Safety Report 5320064-0 (Version None)
Quarter: 2007Q1

REPORT INFORMATION
  Report Type: 
  Country: None (occurrence: None)
  Receive Date: 20070215
  Receipt Date: 20060302
  Transmission Date: 20070707
  Serious: Yes (Other)
  Sender: FDA-Public Use
  Company Number: MC200600180

PATIENT
  Sex: Female
  Weight: 118.8 kg

DRUGS (3)
  1. ANGIOMAX [Suspect]
     Dosage: SEE IMAGE
     Route: 040
     Dates: start: 20060302, end: 20060302
  2. ANGIOMAX [Suspect]
     Dosage: SEE IMAGE
     Route: 040
     Dates: start: 20060302, end: 20060302
  3. PLAVIX [Concomitant]

REACTIONS (2)
  - HAEMORRHAGE [None]
  - THROMBOSIS [None]
